FAERS Safety Report 24364823 (Version 2)
Quarter: 2024Q4

REPORT INFORMATION
  Report Type: Spontaneous
  Country: FR (occurrence: FR)
  Receive Date: 20240926
  Receipt Date: 20241017
  Transmission Date: 20250114
  Serious: Yes (Hospitalization)
  Sender: AUROBINDO
  Company Number: FR-AFSSAPS-SE2024000719

PATIENT
  Age: 94 Year
  Sex: Female
  Weight: 62 kg

DRUGS (3)
  1. FUROSEMIDE [Suspect]
     Active Substance: FUROSEMIDE
     Indication: Cardiac failure
     Dosage: 100 MILLIGRAM, ONCE A DAY (LONG TERM)
     Route: 048
     Dates: end: 20240902
  2. FUROSEMIDE [Suspect]
     Active Substance: FUROSEMIDE
     Dosage: 125 MILLIGRAM, ONCE A DAY
     Route: 048
     Dates: start: 20240903
  3. LEVOFLOXACIN [Suspect]
     Active Substance: LEVOFLOXACIN
     Indication: Pneumonia
     Dosage: 750 MILLIGRAM, ONCE A DAY
     Route: 048
     Dates: start: 20240906, end: 20240910

REACTIONS (1)
  - Hyponatraemia [Recovered/Resolved]

NARRATIVE: CASE EVENT DATE: 20240901
